FAERS Safety Report 15457914 (Version 2)
Quarter: 2018Q4

REPORT INFORMATION
  Report Type: Spontaneous
  Country: US (occurrence: US)
  Receive Date: 20181003
  Receipt Date: 20181016
  Transmission Date: 20190204
  Serious: No
  Sender: FDA-Public Use
  Company Number: US-AMGEN INC.-USASP2018125870

PATIENT
  Age: 39 Year
  Sex: Female
  Weight: 64.4 kg

DRUGS (1)
  1. AIMOVIG [Suspect]
     Active Substance: ERENUMAB-AOOE
     Indication: MIGRAINE
     Dosage: 140 MG, QMO
     Route: 065
     Dates: start: 20180809

REACTIONS (5)
  - Injection site erythema [Recovered/Resolved]
  - Injection site swelling [Recovering/Resolving]
  - Injection site rash [Recovered/Resolved]
  - Injection site haemorrhage [Recovered/Resolved]
  - Incorrect route of product administration [Unknown]

NARRATIVE: CASE EVENT DATE: 201808
